FAERS Safety Report 18689523 (Version 1)
Quarter: 2020Q4

REPORT INFORMATION
  Report Type: Spontaneous
  Country: DE (occurrence: DE)
  Receive Date: 20201231
  Receipt Date: 20201231
  Transmission Date: 20210114
  Serious: Yes (Hospitalization)
  Sender: FDA-Public Use
  Company Number: DE-TEVA-2020-DE-1863612

PATIENT
  Age: 60 Year
  Sex: Male

DRUGS (10)
  1. UMECLIDINIUM BROMID/VILANTEROL [Concomitant]
     Dosage: 2 DOSAGE FORMS DAILY; 62.5|25 UG, 1-0-1-0
  2. PANTOPRAZOL [Concomitant]
     Active Substance: PANTOPRAZOLE SODIUM
     Dosage: 40 MILLIGRAM DAILY;  1-0-0-0
  3. FLUCONAZOL [Suspect]
     Active Substance: FLUCONAZOLE
     Dosage: 200 MG
     Route: 065
     Dates: end: 20200915
  4. VERAPAMIL [Concomitant]
     Active Substance: VERAPAMIL HYDROCHLORIDE
     Dosage: 80 MILLIGRAM DAILY; 1-0-1-0
  5. SALBUTAMOL [Concomitant]
     Active Substance: ALBUTEROL
     Dosage: IF NECESSARY
  6. PEMETREXED. [Suspect]
     Active Substance: PEMETREXED
     Dosage: 780 MG, 22-SEP-2020
     Route: 065
     Dates: end: 20200922
  7. PEMBROLIZUMAB. [Suspect]
     Active Substance: PEMBROLIZUMAB
     Dosage: 200 MG, 22-SEP-2020
     Route: 065
     Dates: end: 20200922
  8. CARBOPLATIN. [Suspect]
     Active Substance: CARBOPLATIN
     Dosage: 500 MG, LAST 11-AUG-2020 NOW PAUSE
     Route: 065
     Dates: end: 20200811
  9. FOLSAURE [Concomitant]
     Active Substance: FOLIC ACID
     Dosage: 5 MILLIGRAM DAILY; 1-0-0-0
  10. ACETYLSALICYLSAEURE [Concomitant]
     Active Substance: ASPIRIN
     Dosage: 100 MILLIGRAM DAILY; 1-0-0-0

REACTIONS (8)
  - Cough [Unknown]
  - Wheezing [Unknown]
  - Dysphagia [Unknown]
  - Condition aggravated [Unknown]
  - Cachexia [Unknown]
  - General physical health deterioration [Unknown]
  - Anaemia [Unknown]
  - Product dose omission issue [Unknown]
